FAERS Safety Report 9681640 (Version 3)
Quarter: 2013Q4

REPORT INFORMATION
  Report Type: Report from Study
  Country: US (occurrence: US)
  Receive Date: 20131111
  Receipt Date: 20131119
  Transmission Date: 20140711
  Serious: Yes (Hospitalization, Other)
  Sender: FDA-Public Use
  Company Number: US-OTSUKA-US-2013-12087

PATIENT
  Age: 64 Year
  Sex: Male
  Weight: 88.89 kg

DRUGS (14)
  1. SAMSCA [Suspect]
     Indication: HYPONATRAEMIA
     Dosage: 15 MG MILLIGRAM(S), QD
     Route: 048
     Dates: start: 20130912, end: 20130926
  2. SAMSCA [Suspect]
     Dosage: 30 MG MILLIGRAM(S), QD
     Route: 048
     Dates: start: 20130927, end: 20131021
  3. SAMSCA [Suspect]
     Dosage: 7.5 MG MILLIGRAM(S), UNK
     Dates: start: 20130930
  4. SAMSCA [Suspect]
     Dosage: 7.5 MG MILLIGRAM(S), QD
     Dates: start: 20130504, end: 20130504
  5. AMLODIPINE [Concomitant]
     Indication: PRODUCT USED FOR UNKNOWN INDICATION
     Dosage: 10 MG MILLIGRAM(S), QD
  6. ASA [Concomitant]
     Indication: PRODUCT USED FOR UNKNOWN INDICATION
     Dosage: 81 MG MILLIGRAM(S), QD
  7. ATENOLOL [Concomitant]
     Indication: PRODUCT USED FOR UNKNOWN INDICATION
     Dosage: 100 MG MILLIGRAM(S), QD
  8. CRESTOR [Concomitant]
     Indication: PRODUCT USED FOR UNKNOWN INDICATION
     Dosage: 5 MG MILLIGRAM(S), HS
  9. DOXAZOSIN [Concomitant]
     Indication: PRODUCT USED FOR UNKNOWN INDICATION
     Dosage: 1 MG MILLIGRAM(S), QD
  10. ENALAPRIL [Concomitant]
     Indication: PRODUCT USED FOR UNKNOWN INDICATION
     Dosage: 20 MG MILLIGRAM(S), BID
  11. GLIPIZIDE EXTENDED RELEASE [Concomitant]
     Indication: PRODUCT USED FOR UNKNOWN INDICATION
     Dosage: 2.5 MG MILLIGRAM(S), QD
  12. JANUVIA [Concomitant]
     Indication: PRODUCT USED FOR UNKNOWN INDICATION
     Dosage: 100 MG MILLIGRAM(S), QD
  13. METFORMIN [Concomitant]
     Indication: PRODUCT USED FOR UNKNOWN INDICATION
     Dosage: 1000 MG MILLIGRAM(S), BID
  14. NACL [Concomitant]
     Indication: PRODUCT USED FOR UNKNOWN INDICATION
     Dosage: 2 G GRAM(S), TID

REACTIONS (4)
  - Dyspnoea [Unknown]
  - Drug ineffective [Unknown]
  - Off label use [Unknown]
  - Off label use [Unknown]
